FAERS Safety Report 4981512-9 (Version None)
Quarter: 2006Q2

REPORT INFORMATION
  Report Type: 
  Country: None (occurrence: None)
  Receive Date: 20060424
  Receipt Date: 20051230
  Transmission Date: 20061013
  Serious: Yes (Hospitalization)
  Sender: FDA-Public Use
  Company Number: US-MERCK-0601USA00289

PATIENT
  Age: 54 Year
  Sex: Male
  Weight: 93 kg

DRUGS (3)
  1. VIOXX [Suspect]
     Indication: PAIN IN EXTREMITY
     Route: 048
     Dates: start: 20021001, end: 20031101
  2. TYLENOL (CAPLET) [Concomitant]
     Route: 065
  3. VIOXX [Suspect]
     Indication: BACK PAIN
     Route: 048
     Dates: start: 20021001, end: 20031101

REACTIONS (2)
  - CEREBROVASCULAR ACCIDENT [None]
  - MENISCUS LESION [None]
